FAERS Safety Report 5735505-4 (Version None)
Quarter: 2008Q2

REPORT INFORMATION
  Report Type: 
  Country: None (occurrence: None)
  Receive Date: 20080512
  Receipt Date: 20080430
  Transmission Date: 20081010
  Serious: Yes (Other)
  Sender: FDA-Public Use
  Company Number: US-PFIZER INC-2007074570

PATIENT
  Sex: Male
  Weight: 88.636 kg

DRUGS (3)
  1. DILANTIN [Suspect]
     Indication: CONVULSION
  2. SULAR [Concomitant]
  3. LIPITOR [Concomitant]

REACTIONS (11)
  - BALANCE DISORDER [None]
  - BLOOD CHOLESTEROL INCREASED [None]
  - DIZZINESS [None]
  - GINGIVAL HYPERPLASIA [None]
  - HEADACHE [None]
  - HYPOAESTHESIA [None]
  - MUSCULOSKELETAL STIFFNESS [None]
  - PRESYNCOPE [None]
  - UNEVALUABLE EVENT [None]
  - VERTIGO [None]
  - VISUAL DISTURBANCE [None]
